FAERS Safety Report 25555872 (Version 1)
Quarter: 2025Q3

REPORT INFORMATION
  Report Type: Spontaneous
  Country: US (occurrence: US)
  Receive Date: 20250715
  Receipt Date: 20250715
  Transmission Date: 20251021
  Serious: No
  Sender: SANOFI AVENTIS
  Company Number: US-SA-2025SA194949

PATIENT
  Sex: Male
  Weight: 76.36 kg

DRUGS (6)
  1. DUPIXENT [Suspect]
     Active Substance: DUPILUMAB
     Indication: Psoriasis
     Dosage: 300 MG, QOW
     Route: 058
  2. LOSARTAN POTASSIUM [Concomitant]
     Active Substance: LOSARTAN POTASSIUM
  3. HYDROCHLOROTHIAZIDE [Concomitant]
     Active Substance: HYDROCHLOROTHIAZIDE
  4. ALEVE [Concomitant]
     Active Substance: NAPROXEN SODIUM
  5. ASPIRIN [Concomitant]
     Active Substance: ASPIRIN
  6. ADVIL [Concomitant]
     Active Substance: IBUPROFEN

REACTIONS (5)
  - Onycholysis [Unknown]
  - Nail infection [Unknown]
  - Nail bed inflammation [Unknown]
  - Nail fold inflammation [Unknown]
  - Product use in unapproved indication [Unknown]
